FAERS Safety Report 8770654 (Version 1)
Quarter: 2012Q4

REPORT INFORMATION
  Report Type: Report from Study
  Country: US (occurrence: US)
  Receive Date: 20120907
  Receipt Date: 20120907
  Transmission Date: 20130627
  Serious: Yes (Hospitalization)
  Sender: FDA-Public Use
  Company Number: US-ROCHE-1112316

PATIENT
  Age: 81 Year
  Sex: Female
  Weight: 63.04 kg

DRUGS (12)
  1. AVASTIN [Suspect]
     Indication: NON-SMALL CELL LUNG CANCER
     Route: 042
     Dates: start: 20090109, end: 20090416
  2. PACLITAXEL [Suspect]
     Indication: NON-SMALL CELL LUNG CANCER
     Route: 042
     Dates: start: 20090109, end: 20090416
  3. CARBOPLATIN [Suspect]
     Indication: NON-SMALL CELL LUNG CANCER
     Route: 042
     Dates: start: 20090109, end: 20090416
  4. AMLODIPINE [Concomitant]
  5. ACIPHEX [Concomitant]
  6. CALCITROL [Concomitant]
  7. CETRIZINE (UNK INGREDIENTS) [Concomitant]
  8. CRESTOR [Concomitant]
  9. DIOVAN [Concomitant]
  10. HYDRALAZINE [Concomitant]
  11. HYDROCHLOROTHIAZIDE [Concomitant]
  12. SERTRALINE [Concomitant]

REACTIONS (1)
  - Convulsion [Recovered/Resolved with Sequelae]
